FAERS Safety Report 4432237-X (Version None)
Quarter: 2004Q3

REPORT INFORMATION
  Report Type: 
  Country: None (occurrence: None)
  Receive Date: 20040819
  Receipt Date: 20040804
  Transmission Date: 20050211
  Serious: Yes (Death, Hospitalization)
  Sender: FDA-Public Use
  Company Number: 2004-BP-06482BP

PATIENT
  Age: 73 Year
  Sex: Female

DRUGS (3)
  1. COMBIVENT [Suspect]
     Indication: OESOPHAGEAL CARCINOMA
     Dosage: SEE IMAGE
     Route: 055
  2. ALBUTEROL [Suspect]
  3. NASAL OXYGEN OXYGEN) [Concomitant]

REACTIONS (10)
  - BLINDNESS [None]
  - COMA [None]
  - DRUG HYPERSENSITIVITY [None]
  - DYSPHAGIA [None]
  - DYSPHONIA [None]
  - MEDICATION ERROR [None]
  - OESOPHAGEAL CARCINOMA [None]
  - PHARMACEUTICAL PRODUCT COMPLAINT [None]
  - PNEUMONIA [None]
  - SCREAMING [None]
